FAERS Safety Report 10414023 (Version 1)
Quarter: 2014Q3

REPORT INFORMATION
  Report Type: Spontaneous
  Country: US (occurrence: US)
  Receive Date: 20140827
  Receipt Date: 20140827
  Transmission Date: 20150326
  Serious: No
  Sender: FDA-Public Use
  Company Number: US-GALDERMA-US13003013

PATIENT
  Age: 37 Year
  Sex: Female

DRUGS (4)
  1. APRICOT FACIAL SCRUB [Concomitant]
     Indication: THERAPEUTIC SKIN CARE TOPICAL
     Route: 061
  2. MARY KAY MOISTURIZER [Concomitant]
     Indication: DRY SKIN PROPHYLAXIS
     Route: 061
  3. ANTIBACTERIAL SOAP [Concomitant]
     Active Substance: CHLOROXYLENOL
     Indication: THERAPEUTIC SKIN CARE TOPICAL
     Route: 061
  4. METROGEL [Suspect]
     Active Substance: METRONIDAZOLE
     Indication: ROSACEA
     Dosage: 1 %
     Route: 061
     Dates: start: 201210, end: 20130912

REACTIONS (2)
  - Drug ineffective [Recovered/Resolved]
  - Erythema [Recovered/Resolved]

NARRATIVE: CASE EVENT DATE: 201210
